FAERS Safety Report 19679916 (Version 1)
Quarter: 2021Q3

REPORT INFORMATION
  Report Type: Spontaneous
  Country: US (occurrence: US)
  Receive Date: 20210810
  Receipt Date: 20210810
  Transmission Date: 20211014
  Serious: Yes (Other)
  Sender: FDA-Public Use
  Company Number: US-LUPIN PHARMACEUTICALS INC.-2021-14288

PATIENT
  Age: 23 Year
  Sex: Male

DRUGS (21)
  1. OXYCODONE [Suspect]
     Active Substance: OXYCODONE
     Indication: CANCER PAIN
     Dosage: UNK
     Route: 065
  2. PREGABALIN. [Suspect]
     Active Substance: PREGABALIN
     Indication: CANCER PAIN
     Dosage: UNK
     Route: 065
  3. IBUPROFEN. [Suspect]
     Active Substance: IBUPROFEN
     Indication: NEURALGIA
  4. PREGABALIN. [Suspect]
     Active Substance: PREGABALIN
     Indication: NEURALGIA
  5. LIDOCAINE. [Suspect]
     Active Substance: LIDOCAINE
     Indication: PENILE PAIN
  6. LIDOCAINE. [Suspect]
     Active Substance: LIDOCAINE
     Indication: NEURALGIA
  7. AMITRIPTYLINE [Suspect]
     Active Substance: AMITRIPTYLINE
     Indication: CANCER PAIN
     Dosage: UNK
     Route: 065
  8. AMITRIPTYLINE [Suspect]
     Active Substance: AMITRIPTYLINE
     Indication: PENILE PAIN
  9. IBUPROFEN. [Suspect]
     Active Substance: IBUPROFEN
     Indication: PENILE PAIN
  10. TRAMADOL. [Suspect]
     Active Substance: TRAMADOL
     Indication: NEURALGIA
  11. PREGABALIN. [Suspect]
     Active Substance: PREGABALIN
     Indication: PENILE PAIN
  12. GABAPENTIN. [Suspect]
     Active Substance: GABAPENTIN
     Indication: CANCER PAIN
     Dosage: UNK
     Route: 065
  13. GABAPENTIN. [Suspect]
     Active Substance: GABAPENTIN
     Indication: PENILE PAIN
  14. GABAPENTIN. [Suspect]
     Active Substance: GABAPENTIN
     Indication: NEURALGIA
  15. OXYCODONE [Suspect]
     Active Substance: OXYCODONE
     Indication: NEURALGIA
  16. TRAMADOL. [Suspect]
     Active Substance: TRAMADOL
     Indication: CANCER PAIN
     Dosage: UNK
     Route: 065
  17. IBUPROFEN. [Suspect]
     Active Substance: IBUPROFEN
     Indication: CANCER PAIN
     Dosage: UNK
     Route: 065
  18. LIDOCAINE. [Suspect]
     Active Substance: LIDOCAINE
     Indication: CANCER PAIN
     Dosage: UNK
     Route: 065
  19. AMITRIPTYLINE [Suspect]
     Active Substance: AMITRIPTYLINE
     Indication: NEURALGIA
  20. OXYCODONE [Suspect]
     Active Substance: OXYCODONE
     Indication: PENILE PAIN
  21. TRAMADOL. [Suspect]
     Active Substance: TRAMADOL
     Indication: PENILE PAIN

REACTIONS (1)
  - Treatment failure [Unknown]
